FAERS Safety Report 26087121 (Version 1)
Quarter: 2025Q4

REPORT INFORMATION
  Report Type: Spontaneous
  Country: CA (occurrence: CA)
  Receive Date: 20251125
  Receipt Date: 20251125
  Transmission Date: 20260118
  Serious: Yes (Other)
  Sender: AUROBINDO
  Company Number: CA-MLMSERVICE-20241015-PI227545-00125-1

PATIENT
  Age: 75 Year
  Sex: Male

DRUGS (1)
  1. DONEPEZIL [Suspect]
     Active Substance: DONEPEZIL
     Indication: Cognitive disorder
     Dosage: UNK
     Route: 065

REACTIONS (4)
  - Clonus [Recovered/Resolved]
  - Condition aggravated [Recovered/Resolved]
  - Dyskinesia [Recovered/Resolved]
  - Resting tremor [Recovered/Resolved]
